FAERS Safety Report 15734443 (Version 1)
Quarter: 2018Q4

REPORT INFORMATION
  Report Type: Spontaneous
  Country: US (occurrence: US)
  Receive Date: 20181218
  Receipt Date: 20181218
  Transmission Date: 20190205
  Serious: No
  Sender: FDA-Public Use
  Company Number: US-MYLANLABS-2018M1092664

PATIENT
  Age: 70 Year
  Sex: Female

DRUGS (5)
  1. PREDNISONE. [Suspect]
     Active Substance: PREDNISONE
     Indication: FUNGAL INFECTION
     Dosage: UNK
     Dates: start: 201806, end: 2018
  2. WARFARIN SODIUM. [Suspect]
     Active Substance: WARFARIN SODIUM
     Dosage: 2.5 MILLIGRAM, QW (HALF TABLET)
     Route: 048
     Dates: end: 2018
  3. LOVASTATIN. [Concomitant]
     Active Substance: LOVASTATIN
     Dosage: 10 MILLIGRAM, QD
     Route: 048
  4. LEVOTHYROXINE                      /00068002/ [Concomitant]
     Active Substance: LEVOTHYROXINE
     Dosage: 25 MICROGRAM, QD
     Route: 048
  5. WARFARIN SODIUM. [Suspect]
     Active Substance: WARFARIN SODIUM
     Indication: TRANSIENT ISCHAEMIC ATTACK
     Dosage: 5 MILLIGRAM, 6XW
     Route: 048
     Dates: start: 2018, end: 2018

REACTIONS (3)
  - International normalised ratio abnormal [Recovered/Resolved]
  - Fungal infection [Recovered/Resolved]
  - Product quality issue [Unknown]

NARRATIVE: CASE EVENT DATE: 201806
